FAERS Safety Report 15125366 (Version 3)
Quarter: 2019Q4

REPORT INFORMATION
  Report Type: Spontaneous
  Country: US (occurrence: US)
  Receive Date: 20180710
  Receipt Date: 20191213
  Transmission Date: 20200122
  Serious: Yes (Life-Threatening, Hospitalization)
  Sender: FDA-Public Use
  Company Number: US-BAYER-2018-072370

PATIENT
  Age: 71 Year
  Sex: Male

DRUGS (4)
  1. XARELTO [Suspect]
     Active Substance: RIVAROXABAN
     Indication: CEREBROVASCULAR ACCIDENT PROPHYLAXIS
  2. ACETYLSALICYLIC ACID [Suspect]
     Active Substance: ASPIRIN
     Indication: PRODUCT USED FOR UNKNOWN INDICATION
     Dosage: 81 MG, QD
     Route: 048
  3. XARELTO [Suspect]
     Active Substance: RIVAROXABAN
     Indication: ATRIAL FIBRILLATION
     Dosage: 10 MG, UNK
     Route: 048
     Dates: start: 20150116, end: 20150301
  4. XARELTO [Suspect]
     Active Substance: RIVAROXABAN
     Indication: THROMBOSIS PROPHYLAXIS
     Dosage: UNK

REACTIONS (5)
  - Prescribed underdose [Unknown]
  - Off label use [Unknown]
  - Traumatic intracranial haemorrhage [Recovering/Resolving]
  - Subdural haematoma [Recovered/Resolved]
  - Fall [Unknown]

NARRATIVE: CASE EVENT DATE: 20150116
